FAERS Safety Report 8306787-X (Version None)
Quarter: 2012Q1

REPORT INFORMATION
  Report Type: 
  Country: None (occurrence: None)
  Receive Date: 20120327
  Receipt Date: 20100323
  Transmission Date: 20120608
  Serious: Yes (Other)
  Sender: FDA-Public Use
  Company Number: PHHY2010US10256

PATIENT
  Age: 74 Year
  Sex: Female
  Weight: 99.8 kg

DRUGS (21)
  1. DETROL LA [Concomitant]
  2. FISH OIL (FISH OIL) [Concomitant]
  3. SELENIUM (SELENIUM) [Concomitant]
  4. PROZAC [Concomitant]
  5. FLAXSEED OIL (LINUM USITATISSIMUM SEED OIL) [Concomitant]
  6. CENTRUM SILVER (ASCORBIC ACID, CALCIUM, MINERALS NOS, RETINOL, TOCOPHE [Concomitant]
  7. GLUCOSAMINE W/CHONDROITIN (CHONDROITIN SULFATE, GLUCOSAMINE) [Concomitant]
  8. FLUOXETINE [Concomitant]
  9. CRESTOR (ROSVUASTATIN CALCIUM) [Concomitant]
  10. PROTONIX [Concomitant]
  11. LIPITOR [Concomitant]
  12. COENZYME Q10 [Concomitant]
  13. VIAMIN D (ERGOCALCIFEROL) [Concomitant]
  14. SYNTHROID [Concomitant]
  15. LEVOTHYROXINE SODIUM [Concomitant]
  16. OMEPRAZOLE [Concomitant]
  17. TOLTERODINE TARTRATE [Concomitant]
  18. ASCORBIC ACID [Concomitant]
  19. RANITIDINE HYDROCHLORIDE [Concomitant]
  20. GLEEVEC [Suspect]
     Indication: GASTROINTESTINAL STROMAL TUMOUR
     Dosage: 400 MG, ORAL
     Route: 048
     Dates: start: 20090522
  21. GLEEVEC [Suspect]
     Indication: GASTROINTESTINAL CARCINOMA
     Dosage: 400 MG, ORAL
     Route: 048
     Dates: start: 20090522

REACTIONS (22)
  - FLUID RETENTION [None]
  - PARANASAL SINUS HYPERSECRETION [None]
  - ARTHRALGIA [None]
  - EYE SWELLING [None]
  - JOINT RANGE OF MOTION DECREASED [None]
  - OEDEMA PERIPHERAL [None]
  - NOCTURIA [None]
  - CONTUSION [None]
  - GASTROOESOPHAGEAL REFLUX DISEASE [None]
  - DEPRESSION [None]
  - WEIGHT INCREASED [None]
  - HOT FLUSH [None]
  - DYSPNOEA EXERTIONAL [None]
  - INSOMNIA [None]
  - MIGRAINE [None]
  - FATIGUE [None]
  - LACRIMATION INCREASED [None]
  - SWELLING [None]
  - JOINT SWELLING [None]
  - MUSCLE SPASMS [None]
  - ALOPECIA [None]
  - NIGHT SWEATS [None]
